FAERS Safety Report 8414162-2 (Version None)
Quarter: 2012Q2

REPORT INFORMATION
  Report Type: 
  Country: None (occurrence: None)
  Receive Date: 20120605
  Receipt Date: 20120526
  Transmission Date: 20120825
  Serious: Yes (Hospitalization, Other)
  Sender: FDA-Public Use
  Company Number: US-ABBOTT-12P-163-0940592-00

PATIENT
  Sex: Female
  Weight: 93.07 kg

DRUGS (3)
  1. METHOTREXATE [Concomitant]
     Indication: PSORIATIC ARTHROPATHY
  2. HUMIRA [Suspect]
     Dates: start: 20120401
  3. HUMIRA [Suspect]
     Indication: PSORIATIC ARTHROPATHY
     Dates: start: 20050801, end: 20120101

REACTIONS (16)
  - HEADACHE [None]
  - NAUSEA [None]
  - INFLAMMATION [None]
  - CAROTID ARTERY OCCLUSION [None]
  - CEREBROVASCULAR ACCIDENT [None]
  - ARTERIOSPASM CORONARY [None]
  - DIZZINESS [None]
  - CARDIAC STRESS TEST ABNORMAL [None]
  - BLINDNESS UNILATERAL [None]
  - HYPERTENSION [None]
  - BLOOD SODIUM DECREASED [None]
  - EYELID PTOSIS [None]
  - VISION BLURRED [None]
  - HAEMOGLOBIN DECREASED [None]
  - CORONARY ARTERY OCCLUSION [None]
  - LABILE BLOOD PRESSURE [None]
